FAERS Safety Report 16681148 (Version 1)
Quarter: 2019Q3

REPORT INFORMATION
  Report Type: Spontaneous
  Country: US (occurrence: US)
  Receive Date: 20190808
  Receipt Date: 20190808
  Transmission Date: 20191004
  Serious: No
  Sender: FDA-Public Use
  Company Number: US-JNJFOC-20190743463

PATIENT
  Age: 70 Year
  Sex: Female

DRUGS (1)
  1. VISINE A [Suspect]
     Active Substance: NAPHAZOLINE HYDROCHLORIDE\PHENIRAMINE MALEATE
     Indication: EYE IRRITATION
     Dosage: 1 DROP IN EACH EYE ONCE
     Route: 047
     Dates: start: 20190730, end: 20190730

REACTIONS (3)
  - Eye colour change [Not Recovered/Not Resolved]
  - Off label use [Unknown]
  - Product use in unapproved indication [Not Recovered/Not Resolved]

NARRATIVE: CASE EVENT DATE: 20190730
